FAERS Safety Report 14835378 (Version 2)
Quarter: 2018Q3

REPORT INFORMATION
  Report Type: Spontaneous
  Country: US (occurrence: US)
  Receive Date: 20180502
  Receipt Date: 20180704
  Transmission Date: 20181010
  Serious: No
  Sender: FDA-Public Use
  Company Number: US-GLENMARK PHARMACEUTICALS-2018GMK032601

PATIENT

DRUGS (3)
  1. POTASSIUM CHLORIDE. [Suspect]
     Active Substance: POTASSIUM CHLORIDE
     Indication: HYPOKALAEMIA
     Dosage: UNK
     Route: 065
     Dates: start: 2017
  2. POTASSIUM CHLORIDE ER CAPSULES [Suspect]
     Active Substance: POTASSIUM CHLORIDE
     Indication: HYPOKALAEMIA
     Dosage: 20 MEQ (2 CAPSULES), TID
     Route: 048
     Dates: start: 2017, end: 2017
  3. POTASSIUM CHLORIDE ER CAPSULES [Suspect]
     Active Substance: POTASSIUM CHLORIDE
     Dosage: 30 MEQ (3 CAPSULES), TID
     Route: 048
     Dates: start: 2017, end: 2017

REACTIONS (4)
  - Constipation [Recovered/Resolved]
  - Tremor [Recovered/Resolved]
  - Product substitution issue [Unknown]
  - Drug ineffective [Unknown]

NARRATIVE: CASE EVENT DATE: 2017
